FAERS Safety Report 4437479-5 (Version None)
Quarter: 2004Q3

REPORT INFORMATION
  Report Type: 
  Country: None (occurrence: None)
  Receive Date: 20040830
  Receipt Date: 20040830
  Transmission Date: 20050211
  Serious: Yes (Life-Threatening, Other)
  Sender: FDA-Public Use
  Company Number: None

PATIENT
  Age: 63 Year
  Sex: Female
  Weight: 126.1 kg

DRUGS (1)
  1. DIOVAN [Suspect]
     Indication: HYPERTENSION
     Dosage: 160 MG PO QD./PTA AND DURING HOSPITALIZATION
     Route: 048

REACTIONS (3)
  - ANGIONEUROTIC OEDEMA [None]
  - RESPIRATORY ARREST [None]
  - SWOLLEN TONGUE [None]
